FAERS Safety Report 6879382-7 (Version None)
Quarter: 2010Q3

REPORT INFORMATION
  Report Type: 
  Country: None (occurrence: None)
  Receive Date: 20100728
  Receipt Date: 20100713
  Transmission Date: 20110219
  Serious: Yes (Hospitalization, Other)
  Sender: FDA-Public Use
  Company Number: AU-PAR PHARMACEUTICAL, INC-2010SCPR000738

PATIENT

DRUGS (7)
  1. FLUOXETINE [Suspect]
     Indication: DEPRESSION
     Dosage: 60 MG, QD
     Route: 065
  2. FLUOXETINE [Suspect]
     Dosage: 80 MG, QD
     Route: 065
  3. ZUCLOPENTHIXOL [Suspect]
     Indication: PSYCHOTIC BEHAVIOUR
     Dosage: UNK
     Route: 065
  4. ZUCLOPENTHIXOL [Suspect]
     Dosage: 100 MG EVERY 28HOURS
     Route: 030
  5. QUETIAPINE [Suspect]
     Indication: PRODUCT USED FOR UNKNOWN INDICATION
     Dosage: 1500 MG, UNKNOWN
     Route: 065
  6. QUETIAPINE [Suspect]
     Dosage: 100 MG, PRN
     Route: 065
  7. NITRAZEPAM [Suspect]
     Indication: PRODUCT USED FOR UNKNOWN INDICATION
     Dosage: 375 MG, UNK
     Route: 065

REACTIONS (8)
  - DRUG INTERACTION [None]
  - DYSPNOEA [None]
  - DYSTONIA [None]
  - EXTRAPYRAMIDAL DISORDER [None]
  - MAJOR DEPRESSION [None]
  - OVERDOSE [None]
  - SPASMODIC DYSPHONIA [None]
  - STRIDOR [None]
